FAERS Safety Report 12444719 (Version 4)
Quarter: 2016Q3

REPORT INFORMATION
  Report Type: Spontaneous
  Country: US (occurrence: US)
  Receive Date: 20160607
  Receipt Date: 20160811
  Transmission Date: 20161109
  Serious: Yes (Life-Threatening, Hospitalization, Other)
  Sender: FDA-Public Use
  Company Number: US-ALEXION PHARMACEUTICALS INC-A201603971

PATIENT
  Age: 36 Year
  Sex: Female

DRUGS (1)
  1. SOLIRIS [Suspect]
     Active Substance: ECULIZUMAB
     Indication: PAROXYSMAL NOCTURNAL HAEMOGLOBINURIA
     Dosage: 900 MG, Q2W
     Route: 042
     Dates: start: 20110214, end: 20160722

REACTIONS (6)
  - Coma [Unknown]
  - Unresponsive to stimuli [Unknown]
  - Cerebral haemorrhage [Unknown]
  - Eye disorder [Unknown]
  - Meningitis [Recovered/Resolved]
  - Blindness [Unknown]

NARRATIVE: CASE EVENT DATE: 201605
